FAERS Safety Report 6589729-7 (Version None)
Quarter: 2010Q1

REPORT INFORMATION
  Report Type: 
  Country: None (occurrence: None)
  Receive Date: 20100212
  Receipt Date: 20100203
  Transmission Date: 20100710
  Serious: Yes (Hospitalization)
  Sender: FDA-Public Use
  Company Number: 1000000405

PATIENT
  Age: 68 Year
  Sex: Female

DRUGS (17)
  1. THYROLAR-3 [Suspect]
     Indication: HYPOTHYROIDISM
     Dosage: (1 IN 1 D), ORAL
     Route: 048
     Dates: start: 19760101, end: 20080815
  2. THYROLAR-2 [Suspect]
     Indication: HYPOTHYROIDISM
     Dosage: (1 IN 1 D), ORAL
     Route: 048
     Dates: start: 20080801, end: 20080801
  3. THYROLAR-1 [Suspect]
     Indication: HYPOTHYROIDISM
     Dosage: (1 IN 1 D), ORAL
     Route: 048
     Dates: start: 20080801, end: 20080801
  4. THYROLAR-0.5 [Suspect]
     Indication: HYPOTHYROIDISM
     Dosage: (1 IN 1 D), ORAL, (1 IN 1 D)
     Route: 048
     Dates: start: 20080801, end: 20080801
  5. THYROLAR-0.5 [Suspect]
     Indication: HYPOTHYROIDISM
     Dosage: (1 IN 1 D), ORAL, (1 IN 1 D)
     Route: 048
     Dates: start: 20090124, end: 20090305
  6. THYROLAR-1 [Suspect]
     Indication: HYPOTHYROIDISM
     Dosage: (1 IN 1 D), ORAL
     Route: 048
     Dates: start: 20080912, end: 20090123
  7. THYROLAR-0.5 [Suspect]
     Indication: HYPOTHYROIDISM
     Dosage: (1 IN 1 D)
     Dates: start: 20080912, end: 20090123
  8. THYROLAR-1 [Suspect]
     Indication: HYPOTHYROIDISM
     Dosage: (1 IN 1 D)
     Dates: start: 20090306, end: 20090718
  9. THYROLAR-0.5 [Suspect]
     Indication: HYPOTHYROIDISM
     Dosage: (1 IN 1 D)
     Dates: start: 20090422, end: 20090718
  10. PREMARIN [Concomitant]
  11. CALCIUM [Concomitant]
  12. LAXIX [Concomitant]
  13. KLOR-CON [Concomitant]
  14. COREG [Concomitant]
  15. ACCUPRIL [Concomitant]
  16. ASPIRIN [Concomitant]
  17. VITAMIN D [Concomitant]

REACTIONS (7)
  - ATRIAL FIBRILLATION [None]
  - BLOOD THYROID STIMULATING HORMONE DECREASED [None]
  - BLOOD THYROID STIMULATING HORMONE INCREASED [None]
  - DRUG INEFFECTIVE [None]
  - DYSPNOEA [None]
  - HEART RATE INCREASED [None]
  - TRICHORRHEXIS [None]
